FAERS Safety Report 6577903-5 (Version None)
Quarter: 2010Q1

REPORT INFORMATION
  Report Type: 
  Country: None (occurrence: None)
  Receive Date: 20100211
  Receipt Date: 20100203
  Transmission Date: 20100710
  Serious: Yes (Death)
  Sender: FDA-Public Use
  Company Number: US-ROCHE-684076

PATIENT
  Sex: Female

DRUGS (1)
  1. XELODA [Suspect]
     Indication: DRUG USE FOR UNKNOWN INDICATION
     Dosage: DOSE: 500 MG, 2 WEEKS ON AND ONE WEEK OFF
     Route: 048
     Dates: start: 20081001, end: 20090201

REACTIONS (1)
  - DEATH [None]
